FAERS Safety Report 8465687-5 (Version None)
Quarter: 2012Q2

REPORT INFORMATION
  Report Type: 
  Country: None (occurrence: None)
  Receive Date: 20120620
  Receipt Date: 20120620
  Transmission Date: 20120825
  Serious: Yes (Other)
  Sender: FDA-Public Use
  Company Number: None

PATIENT
  Sex: Female
  Weight: 102.5129 kg

DRUGS (1)
  1. LATANOPROST [Suspect]
     Indication: HYPERTENSION
     Dosage: ONE QTT QHS
     Dates: start: 20110601

REACTIONS (2)
  - PRODUCT SUBSTITUTION ISSUE [None]
  - EYE IRRITATION [None]
